FAERS Safety Report 6804794-7 (Version None)
Quarter: 2010Q2

REPORT INFORMATION
  Report Type: 
  Country: None (occurrence: None)
  Receive Date: 20100628
  Receipt Date: 20100621
  Transmission Date: 20101027
  Serious: Yes (Death, Hospitalization)
  Sender: FDA-Public Use
  Company Number: FR-ROCHE-661886

PATIENT
  Sex: Male

DRUGS (10)
  1. MYCOPHENOLATE MOFETIL [Suspect]
     Route: 065
     Dates: start: 20070214, end: 20091130
  2. BELATACEPT [Suspect]
     Route: 042
     Dates: start: 20020227, end: 20090908
  3. TAHOR [Concomitant]
     Dates: start: 20040223
  4. ZESTRIL [Concomitant]
     Dates: start: 20060517
  5. LANTUS [Concomitant]
     Dates: start: 20060424
  6. IMOVANE [Concomitant]
     Dates: start: 20090716, end: 20091003
  7. LEXOMIL [Concomitant]
     Dates: start: 20090716, end: 20091003
  8. METFORMIN HCL [Concomitant]
     Dates: start: 20060517
  9. SODIUM BICARBONATE [Concomitant]
     Dates: start: 20020402
  10. CARDIOSOLUPSAN [Concomitant]
     Dates: start: 20020307

REACTIONS (2)
  - MENINGORRHAGIA [None]
  - METASTATIC BRONCHIAL CARCINOMA [None]
